FAERS Safety Report 10338913 (Version 1)
Quarter: 2014Q3

REPORT INFORMATION
  Report Type: Spontaneous
  Country: IN (occurrence: None)
  Receive Date: 20140721
  Receipt Date: 20140721
  Transmission Date: 20150326
  Serious: Yes (Life-Threatening, Hospitalization)
  Sender: FDA-Public Use
  Company Number: AUR-APL-2014-07694

PATIENT
  Age: 42 Year
  Sex: Male

DRUGS (1)
  1. AMLODIPINE [Suspect]
     Active Substance: AMLODIPINE BESYLATE
     Indication: HYPERTENSION
     Route: 048

REACTIONS (9)
  - Respiratory acidosis [None]
  - Metabolic acidosis [None]
  - Anuria [None]
  - Shock [None]
  - Somnolence [None]
  - Hyperlactacidaemia [None]
  - Bradycardia [None]
  - Hypotension [None]
  - Overdose [None]
